FAERS Safety Report 11345206 (Version 1)
Quarter: 2015Q3

REPORT INFORMATION
  Report Type: Report from Study
  Country: US (occurrence: US)
  Receive Date: 20150806
  Receipt Date: 20150806
  Transmission Date: 20151125
  Serious: No
  Sender: FDA-Public Use
  Company Number: US-ABBVIE-15P-163-1409269-00

PATIENT

DRUGS (2)
  1. RIBASPHERE RIBAPAK [Concomitant]
     Active Substance: RIBAVIRIN
     Indication: PRODUCT USED FOR UNKNOWN INDICATION
     Dosage: 400/600MG TABS DOSE PK 14 TABS (ONE 400MG TAB EVERY AM/ONE 600MG TAB EVERY PM)
  2. VIEKIRA PAK [Suspect]
     Active Substance: DASABUVIR\OMBITASVIR\PARITAPREVIR\RITONAVIR
     Indication: HEPATITIS C
     Dosage: PER MANUFACTERERS^S PACKAGE DIRECTIONS IN AM AND PM WEEKLY PACK 28^S
     Route: 048
     Dates: start: 201505

REACTIONS (1)
  - Dyspepsia [Unknown]
